FAERS Safety Report 24119824 (Version 1)
Quarter: 2024Q3

REPORT INFORMATION
  Report Type: Spontaneous
  Country: FI (occurrence: FI)
  Receive Date: 20240722
  Receipt Date: 20240722
  Transmission Date: 20241016
  Serious: Yes (Death, Hospitalization)
  Sender: NORDIC PHARMA
  Company Number: None

PATIENT
  Age: 71 Year
  Sex: Female

DRUGS (18)
  1. METHOTREXATE [Suspect]
     Active Substance: METHOTREXATE
     Indication: Rheumatoid arthritis
     Dosage: 20 MG (0.8 ML) SUBCUTANEOUSLY ONCE A WEEK
     Route: 058
     Dates: start: 20240515, end: 20240613
  2. ATORVASTATIN [Concomitant]
     Active Substance: ATORVASTATIN
     Dates: end: 20240613
  3. LYRICA [Concomitant]
     Active Substance: PREGABALIN
     Dosage: 2 TABL 3 KERTAA PV:SS?
     Route: 048
     Dates: start: 20230127, end: 20240613
  4. NORSPAN [Concomitant]
     Active Substance: BUPRENORPHINE
     Dosage: 1 LAASTARI KERRAN VIIKOSSA / 1 BATCH ONCE IN A WEEK
     Route: 062
     Dates: start: 20240314, end: 20240613
  5. LINAGLIPTIN [Concomitant]
     Active Substance: LINAGLIPTIN
     Dosage: 1 TABL KERRAN PV:SS?
     Route: 048
     Dates: end: 20240613
  6. CARBOMER [Concomitant]
     Active Substance: CARBOMER
     Indication: Dry eye
     Dates: end: 20240613
  7. Hydrex Semi [Concomitant]
     Dosage: 0,5 TABL KERRAN P?IV?SS? AAMULLA / 0,5 TABLET ONCE A DAY IN THE MORNING
     Dates: end: 20240613
  8. EZETIMIB KRKA [Concomitant]
     Dosage: 1 TABL KERRAN PV:SS?
     Dates: start: 202201, end: 20240613
  9. Folic Acid Vitabalans [Concomitant]
     Dosage: 1-2 TABL 3-12 TUNTIA METOTREKSAATIN OTTAMISEN J?LKEEN / 1-2 TABLETS 3-12 HOURS AFTER METHOTREXATE...
     Route: 048
     Dates: start: 20240515, end: 20240613
  10. CALCIUM CARBONATE\CHOLECALCIFEROL [Concomitant]
     Active Substance: CALCIUM CARBONATE\CHOLECALCIFEROL
     Dosage: 1 TABL 2 KERTAA P?IV?SS? / 1 TABLET TWICE A DAY
     Route: 048
     Dates: end: 20240613
  11. MEDITHYROX [Concomitant]
     Dosage: 5 PV:N? 1 TABL, 2 PV:N? 0,5 TABL / 1 TABLET ON 5 DAYS, 0,5 TABLET ON 2 DAYS
     Route: 048
     Dates: end: 20240613
  12. WARFARIN SODIUM [Concomitant]
     Active Substance: WARFARIN SODIUM
     Dosage: ERILLISEN OHJEEN MUKAAN / ACCORDING TO SEPARATE INSTRUCTION
     Route: 048
     Dates: end: 20240613
  13. BISOPROLOL FUMARATE [Concomitant]
     Active Substance: BISOPROLOL FUMARATE
     Indication: Coronary artery disease
     Dosage: 2,5 MG 2 KERTAA P?IV?SS?
     Route: 048
     Dates: end: 20240613
  14. Cohemin Depot [Concomitant]
     Dosage: 1 MG LIHAKSEEN 3 KK V?LEIN
     Route: 030
     Dates: end: 20240613
  15. PANADOL [Concomitant]
     Active Substance: ACETAMINOPHEN
     Dosage: TIME INTERVAL: AS NECESSARY: 1 TABL 1-3 KERTAA VRK:SSA TARVITTAESSA / 1 TABLET 1-3 TIMES A DAY AS...
     Route: 048
     Dates: end: 20240613
  16. AFLIBERCEPT [Concomitant]
     Active Substance: AFLIBERCEPT
     Indication: Macular degeneration
     Route: 031
     Dates: end: 20240613
  17. RAMIPRIL [Concomitant]
     Active Substance: RAMIPRIL
     Dosage: 1 TABL KERRAN PV:SS?
     Route: 048
     Dates: end: 20240613
  18. PANTOPRAZOLE SODIUM [Concomitant]
     Active Substance: PANTOPRAZOLE SODIUM
     Dosage: 1 TABL KERRAN PV:SS?
     Route: 048
     Dates: end: 20240613

REACTIONS (9)
  - Asthenia [Unknown]
  - General physical health deterioration [Unknown]
  - Renal failure [Fatal]
  - Diarrhoea [Recovered/Resolved]
  - Acidosis [Fatal]
  - Myelosuppression [Fatal]
  - Cardiovascular insufficiency [Fatal]
  - Cough [Unknown]
  - Neutropenic sepsis [Fatal]

NARRATIVE: CASE EVENT DATE: 20240601
